FAERS Safety Report 14486614 (Version 1)
Quarter: 2018Q1

REPORT INFORMATION
  Report Type: Report from Study
  Country: IL (occurrence: IL)
  Receive Date: 20180205
  Receipt Date: 20180205
  Transmission Date: 20180509
  Serious: Yes (Death)
  Sender: FDA-Public Use
  Company Number: IL-TEVA-2018-IL-853378

PATIENT
  Age: 65 Year
  Sex: Female

DRUGS (8)
  1. VINCRISTINE [Suspect]
     Active Substance: VINCRISTINE
     Indication: B-CELL LYMPHOMA
     Dosage: FOUR CYCLES OF R-CHOP
     Route: 065
     Dates: start: 200708
  2. CYCLOPHOSPHAMIDE. [Suspect]
     Active Substance: CYCLOPHOSPHAMIDE
     Indication: B-CELL LYMPHOMA
     Dosage: THREE CYCLES OF RITUXIMAB COMBINED WITH FLUDARABINE AND CYCLOPHOSPHAMIDE
     Route: 065
  3. RITUXIMAB. [Suspect]
     Active Substance: RITUXIMAB
     Indication: B-CELL LYMPHOMA
     Dosage: THREE CYCLES WITH FLUDARABINE AND CYCLOPHOSPHAMIDE
     Route: 065
  4. ADRIAMYCIN [Suspect]
     Active Substance: DOXORUBICIN HYDROCHLORIDE
     Indication: B-CELL LYMPHOMA
     Dosage: FOUR CYCLES OF R-CHOP
     Route: 065
     Dates: start: 200708
  5. CYCLOPHOSPHAMIDE. [Suspect]
     Active Substance: CYCLOPHOSPHAMIDE
     Indication: B-CELL LYMPHOMA
     Dosage: FOUR CYCLES OF R-CHOP
     Route: 065
     Dates: start: 200708
  6. PREDNISONE. [Suspect]
     Active Substance: PREDNISONE
     Indication: B-CELL LYMPHOMA
     Dosage: FOUR CYCLES OF R-CHOP
     Route: 065
     Dates: start: 200708
  7. FLUDARABINE [Suspect]
     Active Substance: FLUDARABINE PHOSPHATE
     Indication: B-CELL LYMPHOMA
     Dosage: THREE CYCLES OF RITUXIMAB COMBINED WITH FLUDARABINE AND CYCLOPHOSPHAMIDE
     Route: 065
  8. RITUXIMAB. [Suspect]
     Active Substance: RITUXIMAB
     Indication: B-CELL LYMPHOMA
     Dosage: FOUR CYCLES OF R-CHOP,
     Route: 065
     Dates: start: 200708

REACTIONS (2)
  - Coma [Fatal]
  - Central nervous system enteroviral infection [Fatal]
